FAERS Safety Report 15722488 (Version 1)
Quarter: 2018Q4

REPORT INFORMATION
  Report Type: Spontaneous
  Country: GB (occurrence: GB)
  Receive Date: 20181214
  Receipt Date: 20181214
  Transmission Date: 20190205
  Serious: Yes (Other)
  Sender: FDA-Public Use
  Company Number: PHHY2018GB184116

PATIENT
  Age: 75 Year
  Sex: Male
  Weight: 78 kg

DRUGS (12)
  1. SODIUM CITRATE. [Concomitant]
     Active Substance: SODIUM CITRATE
     Indication: PRODUCT USED FOR UNKNOWN INDICATION
     Route: 065
     Dates: start: 20181112, end: 20181114
  2. FLUCLOXACILLIN [Concomitant]
     Active Substance: FLUCLOXACILLIN
     Indication: PRODUCT USED FOR UNKNOWN INDICATION
     Dosage: 4 DF, UNK
     Route: 065
     Dates: start: 20181009, end: 20181016
  3. WARFARIN SODIUM. [Concomitant]
     Active Substance: WARFARIN SODIUM
     Indication: PRODUCT USED FOR UNKNOWN INDICATION
     Dosage: 1 DF, UNK (DOSE AS WARFARIN CLINIC DIRECTS.  TAKE AT 6PM.)
     Route: 065
     Dates: start: 20180615
  4. GLYCERYL TRINITRATE [Concomitant]
     Active Substance: NITROGLYCERIN
     Indication: PRODUCT USED FOR UNKNOWN INDICATION
     Dosage: 1 DF, UNK (PUFF)
     Route: 065
     Dates: start: 20180615
  5. AMIAS [Concomitant]
     Active Substance: CANDESARTAN CILEXETIL
     Indication: PRODUCT USED FOR UNKNOWN INDICATION
     Dosage: 1 DF, UNK (NIGHT)
     Route: 065
     Dates: start: 20180615
  6. PREDNISOLONE. [Concomitant]
     Active Substance: PREDNISOLONE
     Indication: PRODUCT USED FOR UNKNOWN INDICATION
     Dosage: 3 DF, UNK (AND REDUCE AS DIRECTED)
     Route: 065
     Dates: start: 20180621
  7. DICLOFENAC DIETHYLAMINE [Concomitant]
     Active Substance: DICLOFENAC DIETHYLAMINE
     Indication: PRODUCT USED FOR UNKNOWN INDICATION
     Dosage: APPLY UP TO 3 TIMES A DAY.
     Route: 065
  8. EPLERENONE. [Suspect]
     Active Substance: EPLERENONE
     Indication: PRODUCT USED FOR UNKNOWN INDICATION
     Dosage: 12.5 MG, UNK
     Route: 065
     Dates: start: 20181024
  9. COLCHICINE. [Concomitant]
     Active Substance: COLCHICINE
     Indication: PRODUCT USED FOR UNKNOWN INDICATION
     Dosage: 1 DF, UNK (WITH MAXIMUM OF 12 IN 4 DAYS)
     Route: 065
     Dates: start: 20180615
  10. NITROFURANTOIN. [Concomitant]
     Active Substance: NITROFURANTOIN
     Indication: PRODUCT USED FOR UNKNOWN INDICATION
     Dosage: FOR MEN AND URINARY TRACT INFECTIONS IN PREGNANCY (AVOID AT TERM).
     Route: 065
     Dates: start: 20181112, end: 20181119
  11. FUROSEMIDE. [Concomitant]
     Active Substance: FUROSEMIDE
     Indication: PRODUCT USED FOR UNKNOWN INDICATION
     Dosage: 2 DF, UNK (MORNING AND AT 6PM)
     Route: 065
     Dates: start: 20180615
  12. LANSOPRAZOLE. [Concomitant]
     Active Substance: LANSOPRAZOLE
     Indication: PRODUCT USED FOR UNKNOWN INDICATION
     Dosage: 1 DF, UNK
     Route: 065
     Dates: start: 20180615

REACTIONS (3)
  - Palpitations [Recovered/Resolved]
  - Oedema [Unknown]
  - Dyspnoea [Recovered/Resolved]

NARRATIVE: CASE EVENT DATE: 20181120
